FAERS Safety Report 5879615-X (Version None)
Quarter: 2008Q3

REPORT INFORMATION
  Report Type: 
  Country: None (occurrence: None)
  Receive Date: 20080911
  Receipt Date: 20080911
  Transmission Date: 20090109
  Serious: No
  Sender: FDA-Public Use
  Company Number: None

PATIENT
  Sex: Female
  Weight: 56.6996 kg

DRUGS (1)
  1. CIPRO [Suspect]
     Indication: DIARRHOEA INFECTIOUS
     Dosage: 500 MG 1 TIME PO
     Route: 048
     Dates: start: 20080711, end: 20080711

REACTIONS (1)
  - TENDON RUPTURE [None]
